FAERS Safety Report 4842874-6 (Version None)
Quarter: 2005Q4

REPORT INFORMATION
  Report Type: 
  Country: None (occurrence: None)
  Receive Date: 20051201
  Receipt Date: 20051121
  Transmission Date: 20060501
  Serious: Yes (Other)
  Sender: FDA-Public Use
  Company Number: PHFR2005GB03809

PATIENT
  Age: 16 Year
  Sex: Male

DRUGS (2)
  1. RITALIN [Suspect]
     Indication: ATTENTION DEFICIT/HYPERACTIVITY DISORDER
     Dosage: 20 MG, TID
     Route: 048
     Dates: start: 19960101
  2. MELATONIN [Concomitant]
     Indication: INSOMNIA
     Dosage: 3 MG NOCTE
     Route: 048
     Dates: start: 20010101, end: 20050602

REACTIONS (1)
  - NEUTROPENIA [None]
